FAERS Safety Report 8602655-4 (Version None)
Quarter: 2012Q3

REPORT INFORMATION
  Report Type: 
  Country: None (occurrence: None)
  Receive Date: 20120817
  Receipt Date: 20120809
  Transmission Date: 20120928
  Serious: Yes (Other)
  Sender: FDA-Public Use
  Company Number: CN-ASTRAZENECA-2012SE56463

PATIENT
  Age: 58 Year
  Sex: Male

DRUGS (1)
  1. LIDOCAINE [Suspect]
     Indication: LOCAL ANAESTHESIA
     Route: 058

REACTIONS (1)
  - MANIA [None]
